FAERS Safety Report 7166172-3 (Version None)
Quarter: 2010Q4

REPORT INFORMATION
  Report Type: 
  Country: None (occurrence: None)
  Receive Date: 20101203
  Receipt Date: 20101118
  Transmission Date: 20110411
  Serious: Yes (Other)
  Sender: FDA-Public Use
  Company Number: 022315

PATIENT
  Sex: Female

DRUGS (1)
  1. CIMZIA [Suspect]
     Dosage: (200MG, PFS SUBCUTANEOUS)
     Route: 058

REACTIONS (2)
  - ERYTHEMA [None]
  - NODULE [None]
